FAERS Safety Report 6259296-6 (Version None)
Quarter: 2009Q3

REPORT INFORMATION
  Report Type: 
  Country: None (occurrence: None)
  Receive Date: 20090707
  Receipt Date: 20090629
  Transmission Date: 20100115
  Serious: Yes (Hospitalization)
  Sender: FDA-Public Use
  Company Number: PHHO2009US08173

PATIENT
  Sex: Female
  Weight: 116.3 kg

DRUGS (27)
  1. ZOLEDRONIC ACID [Suspect]
     Indication: METASTASES TO BONE
     Dosage: 4MG EVERY 4 WEEKS
     Route: 042
     Dates: start: 20081117
  2. KLONOPIN [Suspect]
  3. LANTUS [Suspect]
  4. LIBRIUM [Suspect]
  5. MS CONTIN [Suspect]
  6. MORPHINE SULFATE [Suspect]
  7. METOPROLOL TARTRATE [Suspect]
  8. NOVOLIN [Suspect]
  9. SEROQUEL [Suspect]
  10. WELLBUTRIN [Suspect]
  11. VITAMIN D [Concomitant]
  12. AROMASIN [Concomitant]
  13. BIOTIN [Concomitant]
  14. CALCIUM W/MAGNESIUM [Concomitant]
  15. CHROMIUM PICOLINATE [Concomitant]
  16. FISH OIL [Concomitant]
  17. GLUCOVANCE [Concomitant]
  18. IRON [Concomitant]
  19. LEXAPRO [Concomitant]
  20. MELATONIN [Concomitant]
  21. MELOXICAM [Concomitant]
  22. NAPROSYN [Concomitant]
  23. NEXIUM [Concomitant]
  24. PREDNISONE TAB [Concomitant]
  25. REGLAN [Concomitant]
  26. VITAMIN B COMPLEX CAP [Concomitant]
  27. ASCORBIC ACID [Concomitant]

REACTIONS (4)
  - DIZZINESS [None]
  - LOSS OF CONSCIOUSNESS [None]
  - SINUS BRADYCARDIA [None]
  - SYNCOPE [None]
